FAERS Safety Report 22218146 (Version 1)
Quarter: 2023Q2

REPORT INFORMATION
  Report Type: Spontaneous
  Country: US (occurrence: None)
  Receive Date: 20230414
  Receipt Date: 20230414
  Transmission Date: 20230722
  Serious: Yes (Other)
  Sender: FDA-Public Use
  Company Number: None

PATIENT
  Age: 53 Year
  Sex: Male
  Weight: 119.25 kg

DRUGS (10)
  1. INGREZZA [Suspect]
     Active Substance: VALBENAZINE
     Indication: Tremor
     Dosage: OTHER QUANTITY : 1 CAPSULE(S);?
     Route: 048
  2. Pacemaker [Concomitant]
  3. OMEPRAZOLE [Concomitant]
  4. escutalopram [Concomitant]
  5. LORAZEPAM [Concomitant]
  6. hydrmorphone [Concomitant]
  7. REXULTI [Concomitant]
     Active Substance: BREXPIPRAZOLE
  8. ELIQUIS [Concomitant]
     Active Substance: APIXABAN
  9. Trazadone [Concomitant]
  10. zalepone [Concomitant]

REACTIONS (3)
  - Hypersomnia [None]
  - Crying [None]
  - Dyspnoea [None]

NARRATIVE: CASE EVENT DATE: 20230412
